FAERS Safety Report 9746725 (Version 1)
Quarter: 2013Q4

REPORT INFORMATION
  Report Type: Spontaneous
  Country: US (occurrence: US)
  Receive Date: 20131211
  Receipt Date: 20131211
  Transmission Date: 20140711
  Serious: No
  Sender: FDA-Public Use
  Company Number: US-TEVA-448298USA

PATIENT
  Age: 33 Year
  Sex: Female
  Weight: 79.45 kg

DRUGS (1)
  1. NUVIGIL [Suspect]

REACTIONS (4)
  - Feeling jittery [Unknown]
  - Insomnia [Unknown]
  - Euphoric mood [Unknown]
  - Amphetamines positive [Recovered/Resolved]
